FAERS Safety Report 5867198-X (Version None)
Quarter: 2008Q3

REPORT INFORMATION
  Report Type: 
  Country: None (occurrence: None)
  Receive Date: 20080829
  Receipt Date: 20080829
  Transmission Date: 20090109
  Serious: Yes (Hospitalization)
  Sender: FDA-Public Use
  Company Number: None

PATIENT
  Age: 71 Year
  Sex: Female
  Weight: 75.2971 kg

DRUGS (1)
  1. MS CONTIN [Suspect]

REACTIONS (2)
  - BLOOD PRESSURE DECREASED [None]
  - CONFUSIONAL STATE [None]
